FAERS Safety Report 10378721 (Version 1)
Quarter: 2014Q3

REPORT INFORMATION
  Report Type: Spontaneous
  Country: US (occurrence: US)
  Receive Date: 20140812
  Receipt Date: 20140812
  Transmission Date: 20150326
  Serious: No
  Sender: FDA-Public Use
  Company Number: US-US-EMD SERONO, INC.-7312470

PATIENT
  Sex: Female

DRUGS (1)
  1. REBIF [Suspect]
     Active Substance: INTERFERON BETA-1A
     Indication: PRODUCT USED FOR UNKNOWN INDICATION
     Route: 058
     Dates: start: 2010

REACTIONS (3)
  - Migraine [Unknown]
  - Muscle spasms [Recovering/Resolving]
  - Influenza like illness [Unknown]
